FAERS Safety Report 11247077 (Version 1)
Quarter: 2015Q3

REPORT INFORMATION
  Report Type: Spontaneous
  Country: US (occurrence: US)
  Receive Date: 20150708
  Receipt Date: 20150708
  Transmission Date: 20151125
  Serious: No
  Sender: FDA-Public Use
  Company Number: US-PFIZER INC-2015096333

PATIENT
  Age: 41 Year
  Sex: Female
  Weight: 73 kg

DRUGS (1)
  1. IBRANCE [Suspect]
     Active Substance: PALBOCICLIB
     Indication: BREAST CANCER METASTATIC
     Dosage: 125 MG, DAILY, 21 DAYS OF THERAPY AND 7 DAYS OFF, CYCLIC
     Route: 048
     Dates: start: 201504

REACTIONS (1)
  - White blood cell count decreased [Unknown]
